FAERS Safety Report 4308113-X (Version None)
Quarter: 2004Q1

REPORT INFORMATION
  Report Type: 
  Country: None (occurrence: None)
  Receive Date: 20040301
  Receipt Date: 20030506
  Transmission Date: 20041129
  Serious: No
  Sender: FDA-Public Use
  Company Number: US-BRISTOL-MYERS SQUIBB COMPANY-12284592

PATIENT
  Age: 66 Year
  Sex: Female

DRUGS (1)
  1. GLUCOPHAGE [Suspect]
     Dosage: TOOK GLUCOPHAGE ^A COUPLE OF YEARS AGO^

REACTIONS (1)
  - ABDOMINAL PAIN UPPER [None]
